FAERS Safety Report 10029876 (Version 1)
Quarter: 2014Q1

REPORT INFORMATION
  Report Type: Spontaneous
  Country: US (occurrence: None)
  Receive Date: 20140304
  Receipt Date: 20140304
  Transmission Date: 20141002
  Serious: Yes (Hospitalization, Other)
  Sender: FDA-Public Use
  Company Number: RB-33665-2011

PATIENT
  Sex: Female
  Weight: 59.88 kg

DRUGS (2)
  1. SUBOXONE [Suspect]
     Indication: DRUG WITHDRAWAL SYNDROME
     Route: 060
     Dates: start: 20110310
  2. CLONAZEPAM [Concomitant]

REACTIONS (2)
  - Hypersensitivity [None]
  - Pharyngeal oedema [None]
